FAERS Safety Report 16841859 (Version 1)
Quarter: 2019Q3

REPORT INFORMATION
  Report Type: Spontaneous
  Country: CN (occurrence: CN)
  Receive Date: 20190923
  Receipt Date: 20190923
  Transmission Date: 20191005
  Serious: Yes (Other)
  Sender: FDA-Public Use
  Company Number: PHHY2017CN012123

PATIENT
  Age: 58 Year
  Sex: Male

DRUGS (5)
  1. DIOVAN [Suspect]
     Active Substance: VALSARTAN
     Indication: HYPERTENSION
     Dosage: 2 DF, QD (ONE CAPSULES IN MORNING AND ONE CAPSULE IN AFTERNOON)
     Route: 048
  2. DIOVAN [Suspect]
     Active Substance: VALSARTAN
     Dosage: 1 DF, QD (ONE CAPSULE (AT 5 IN THE MORNING)
     Route: 048
  3. DIOVAN [Suspect]
     Active Substance: VALSARTAN
     Dosage: 2 DF, QD (TWO CAPSULES)
     Route: 048
     Dates: end: 20170120
  4. AMLODIPINE BESYLATE. [Suspect]
     Active Substance: AMLODIPINE BESYLATE
     Indication: PRODUCT USED FOR UNKNOWN INDICATION
     Dosage: UNK
     Route: 065
  5. DIOVAN [Suspect]
     Active Substance: VALSARTAN
     Dosage: 1 DF, UNK
     Route: 048
     Dates: start: 20170121

REACTIONS (10)
  - Headache [Unknown]
  - Blood pressure systolic increased [Recovering/Resolving]
  - Malaise [Unknown]
  - Blood pressure increased [Recovering/Resolving]
  - Vision blurred [Unknown]
  - Dizziness [Unknown]
  - Pharyngitis [Unknown]
  - Asthenia [Unknown]
  - Product physical issue [Unknown]
  - Drug ineffective [Unknown]

NARRATIVE: CASE EVENT DATE: 2017
